FAERS Safety Report 6115119-7 (Version None)
Quarter: 2009Q1

REPORT INFORMATION
  Report Type: 
  Country: None (occurrence: None)
  Receive Date: 20090313
  Receipt Date: 20090303
  Transmission Date: 20090719
  Serious: Yes (Other)
  Sender: FDA-Public Use
  Company Number: CZ-NOVOPROD-285073

PATIENT
  Sex: Female
  Weight: 61 kg

DRUGS (3)
  1. NOVORAPID [Suspect]
     Indication: TYPE 1 DIABETES MELLITUS
     Dosage: 21 IU, QD
     Route: 058
     Dates: start: 20071201
  2. LEVEMIR [Suspect]
     Indication: TYPE 1 DIABETES MELLITUS
     Dosage: 19 IU, QD
     Route: 058
     Dates: start: 20071201
  3. ACE INHIBITOR NOS [Concomitant]
     Indication: DRUG USE FOR UNKNOWN INDICATION
     Route: 048
     Dates: start: 20060501, end: 20060701

REACTIONS (2)
  - ABORTION MISSED [None]
  - DIABETES MELLITUS INADEQUATE CONTROL [None]
